FAERS Safety Report 13595845 (Version 2)
Quarter: 2017Q3

REPORT INFORMATION
  Report Type: Spontaneous
  Country: US (occurrence: US)
  Receive Date: 20170531
  Receipt Date: 20170725
  Transmission Date: 20171127
  Serious: No
  Sender: FDA-Public Use
  Company Number: US-JNJFOC-20170509845

PATIENT
  Age: 7 Month
  Sex: Female
  Weight: 9.07 kg

DRUGS (4)
  1. MOTRIN [Suspect]
     Active Substance: IBUPROFEN
     Route: 048
  2. AMOXICILLIN. [Concomitant]
     Active Substance: AMOXICILLIN
     Indication: EAR INFECTION
     Route: 065
  3. MOTRIN [Suspect]
     Active Substance: IBUPROFEN
     Indication: PYREXIA
     Route: 048
     Dates: start: 20170509, end: 20170509
  4. AMOXICILLIN. [Concomitant]
     Active Substance: AMOXICILLIN
     Indication: VIRAL UPPER RESPIRATORY TRACT INFECTION
     Route: 065

REACTIONS (2)
  - Vomiting [Recovered/Resolved]
  - White blood cells urine positive [Unknown]

NARRATIVE: CASE EVENT DATE: 20170509
